FAERS Safety Report 24709074 (Version 1)
Quarter: 2024Q4

REPORT INFORMATION
  Report Type: Spontaneous
  Country: HU (occurrence: HU)
  Receive Date: 20241208
  Receipt Date: 20241208
  Transmission Date: 20250114
  Serious: Yes (Disabling, Congenital Anomaly)
  Sender: JOHNSON AND JOHNSON
  Company Number: HU-JNJFOC-20241201228

PATIENT

DRUGS (2)
  1. STELARA [Suspect]
     Active Substance: USTEKINUMAB
     Indication: Crohn^s disease
     Route: 064
     Dates: start: 20231006, end: 20240912
  2. STELARA [Suspect]
     Active Substance: USTEKINUMAB
     Route: 064

REACTIONS (3)
  - Cleft lip [Not Recovered/Not Resolved]
  - Cleft palate [Not Recovered/Not Resolved]
  - Foetal exposure during pregnancy [Not Recovered/Not Resolved]
